FAERS Safety Report 8979134 (Version 2)
Quarter: 2013Q1

REPORT INFORMATION
  Report Type: Spontaneous
  Country: US (occurrence: US)
  Receive Date: 20121221
  Receipt Date: 20130114
  Transmission Date: 20140127
  Serious: Yes (Death, Hospitalization)
  Sender: FDA-Public Use
  Company Number: US-GLAXOSMITHKLINE-A1005891A

PATIENT
  Age: 59 Year
  Sex: Female

DRUGS (2)
  1. TYKERB [Suspect]
     Indication: BREAST CANCER
     Route: 048
  2. CONCURRENT MEDICATIONS [Concomitant]

REACTIONS (4)
  - Cardio-respiratory arrest [Fatal]
  - Respiratory failure [Fatal]
  - Pulmonary embolism [Fatal]
  - Breast cancer metastatic [Fatal]
